FAERS Safety Report 17557287 (Version 2)
Quarter: 2020Q2

REPORT INFORMATION
  Report Type: Spontaneous
  Country: US (occurrence: US)
  Receive Date: 20200318
  Receipt Date: 20200623
  Transmission Date: 20200713
  Serious: No
  Sender: FDA-Public Use
  Company Number: US-GLOBAL BLOOD THERAPEUTICS INC-US-GBT-20-00129

PATIENT
  Age: 36 Year
  Sex: Female

DRUGS (25)
  1. OXBRYTA [Suspect]
     Active Substance: VOXELOTOR
     Route: 048
     Dates: start: 2020, end: 2020
  2. OXBRYTA [Suspect]
     Active Substance: VOXELOTOR
     Route: 048
     Dates: start: 202004, end: 202004
  3. VITAMIN D [Concomitant]
     Active Substance: VITAMIN D NOS
     Indication: PRODUCT USED FOR UNKNOWN INDICATION
  4. VITAMIN E [Concomitant]
     Active Substance: .ALPHA.-TOCOPHEROL
     Indication: PRODUCT USED FOR UNKNOWN INDICATION
  5. CALCIUM [Concomitant]
     Active Substance: CALCIUM
     Indication: PRODUCT USED FOR UNKNOWN INDICATION
  6. CITRULLINE [Concomitant]
     Active Substance: CITRULLINE
     Indication: PRODUCT USED FOR UNKNOWN INDICATION
  7. BIOTIN [Concomitant]
     Active Substance: BIOTIN
     Indication: PRODUCT USED FOR UNKNOWN INDICATION
  8. FISH OIL [Concomitant]
     Active Substance: FISH OIL
     Indication: PRODUCT USED FOR UNKNOWN INDICATION
  9. OXBRYTA [Suspect]
     Active Substance: VOXELOTOR
     Route: 048
     Dates: start: 202004
  10. SYMBICORT [Concomitant]
     Active Substance: BUDESONIDE\FORMOTEROL FUMARATE DIHYDRATE
     Indication: ASTHMA
  11. FOLIC ACID. [Concomitant]
     Active Substance: FOLIC ACID
     Indication: PRODUCT USED FOR UNKNOWN INDICATION
  12. OXBRYTA [Suspect]
     Active Substance: VOXELOTOR
     Indication: SICKLE CELL DISEASE
     Route: 048
     Dates: start: 20200117, end: 20200212
  13. OXBRYTA [Suspect]
     Active Substance: VOXELOTOR
     Route: 048
     Dates: start: 20200219, end: 2020
  14. OXBRYTA [Suspect]
     Active Substance: VOXELOTOR
     Route: 048
     Dates: start: 202004, end: 202004
  15. SINGULAIR [Concomitant]
     Active Substance: MONTELUKAST SODIUM
     Indication: ASTHMA
     Route: 048
  16. VITAMIN C [Concomitant]
     Active Substance: ASCORBIC ACID
     Indication: PRODUCT USED FOR UNKNOWN INDICATION
  17. TEA [Concomitant]
     Active Substance: TEA LEAF
     Indication: PRODUCT USED FOR UNKNOWN INDICATION
  18. MULTIVITAMIN [Concomitant]
     Active Substance: VITAMINS
     Indication: PRODUCT USED FOR UNKNOWN INDICATION
  19. MEDICAL THC [Concomitant]
     Indication: PAIN
  20. ALPHA LIPOIC ACID [Concomitant]
     Active Substance: .ALPHA.-LIPOIC ACID
     Indication: PRODUCT USED FOR UNKNOWN INDICATION
  21. PIROXICAM. [Concomitant]
     Active Substance: PIROXICAM
     Indication: PAIN
  22. ALBUTEROL. [Concomitant]
     Active Substance: ALBUTEROL
     Indication: ASTHMA
  23. TYLENOL [Concomitant]
     Active Substance: ACETAMINOPHEN
     Indication: PRODUCT USED FOR UNKNOWN INDICATION
  24. MINERAL SUPPLEMENT [Concomitant]
     Indication: PRODUCT USED FOR UNKNOWN INDICATION
  25. MILK THISTLE [Concomitant]
     Active Substance: DIETARY SUPPLEMENT\HERBALS\MILK THISTLE
     Indication: PRODUCT USED FOR UNKNOWN INDICATION

REACTIONS (11)
  - Dysgeusia [Recovered/Resolved]
  - Pain [Recovering/Resolving]
  - Muscle spasms [Recovering/Resolving]
  - Diarrhoea [Recovered/Resolved]
  - Dyspepsia [Not Recovered/Not Resolved]
  - Abdominal pain upper [Recovered/Resolved]
  - Abdominal discomfort [Not Recovered/Not Resolved]
  - Flatulence [Recovering/Resolving]
  - Product dose omission [Unknown]
  - Off label use [Unknown]
  - Nausea [Recovered/Resolved]

NARRATIVE: CASE EVENT DATE: 2020
